FAERS Safety Report 5198905-X (Version None)
Quarter: 2006Q4

REPORT INFORMATION
  Report Type: 
  Country: None (occurrence: None)
  Receive Date: 20060925
  Receipt Date: 20051110
  Transmission Date: 20070319
  Serious: Yes (Other)
  Sender: FDA-Public Use
  Company Number: 2005US000999

PATIENT
  Sex: Male

DRUGS (9)
  1. AMBISOME [Suspect]
     Indication: MENINGITIS CRYPTOCOCCAL
     Dosage: IV NOS; SEE IMAGE
     Route: 042
     Dates: start: 20051011, end: 20051024
  2. AMBISOME [Suspect]
     Indication: MENINGITIS CRYPTOCOCCAL
     Dosage: IV NOS; SEE IMAGE
     Route: 042
     Dates: start: 20050608
  3. TRUVADA [Suspect]
     Indication: HIV INFECTION
     Dosage: SEE IMAGE
     Dates: start: 20050303, end: 20050607
  4. TRUVADA [Suspect]
     Indication: HIV INFECTION
     Dosage: SEE IMAGE
     Dates: start: 20050608, end: 20050625
  5. TRUVADA [Suspect]
     Indication: HIV INFECTION
     Dosage: SEE IMAGE
     Dates: start: 20050626, end: 20050701
  6. AMPHOTERICIN B [Suspect]
     Indication: MENINGITIS CRYPTOCOCCAL
     Dates: start: 20050520, end: 20050607
  7. ATAZANAVIR (ATAZANAVIR) [Concomitant]
  8. RITONAVIR (RITONAVIR) [Concomitant]
  9. EFAVIRENZ [Concomitant]

REACTIONS (1)
  - RENAL FAILURE ACUTE [None]
